FAERS Safety Report 12184593 (Version 1)
Quarter: 2016Q1

REPORT INFORMATION
  Report Type: Spontaneous
  Country: JP (occurrence: JP)
  Receive Date: 20160316
  Receipt Date: 20160316
  Transmission Date: 20160526
  Serious: Yes (Hospitalization)
  Sender: FDA-Public Use
  Company Number: JP-DSJP-DSJ-2016-109192

PATIENT

DRUGS (8)
  1. PRALIA SUBCUTANEOUS INJECTION 60MG SYRINGE [Concomitant]
     Active Substance: DENOSUMAB
     Dosage: 60 MG, ONCE EVERY 6 MO
     Route: 058
     Dates: start: 201506
  2. WARFARIN                           /00014803/ [Suspect]
     Active Substance: WARFARIN
     Dosage: 2 MG, ONCE EVERY 1 WK
     Route: 048
     Dates: end: 20150624
  3. DENOTAS CHEWABLE COMBINATION TABLETS [Concomitant]
     Dosage: UNK UNK, QD
     Route: 048
     Dates: start: 201506
  4. WARFARIN                           /00014803/ [Suspect]
     Active Substance: WARFARIN
     Dosage: 3 MG, QD
     Route: 048
     Dates: end: 20160120
  5. LIXIANA TABLETS 30MG [Suspect]
     Active Substance: EDOXABAN TOSILATE MONOHYDRATE
     Indication: ATRIAL FIBRILLATION
     Dosage: 30 MG, QD
     Route: 048
     Dates: start: 20160304, end: 20160306
  6. WARFARIN                           /00014803/ [Suspect]
     Active Substance: WARFARIN
     Dosage: 1 MG, ONCE EVERY 1 WK
     Route: 048
     Dates: start: 20150624, end: 20160120
  7. WARFARIN                           /00014803/ [Suspect]
     Active Substance: WARFARIN
     Dosage: 2 MG, QD
     Route: 048
     Dates: start: 20160120, end: 20160302
  8. LORCAM [Concomitant]
     Active Substance: LORNOXICAM
     Dosage: 4 MG, AS NEEDED
     Route: 048
     Dates: start: 20110209

REACTIONS (1)
  - Cerebrovascular accident [Unknown]

NARRATIVE: CASE EVENT DATE: 20160306
